FAERS Safety Report 14572335 (Version 1)
Quarter: 2018Q1

REPORT INFORMATION
  Report Type: Report from Study
  Country: FR (occurrence: FR)
  Receive Date: 20180226
  Receipt Date: 20180226
  Transmission Date: 20180509
  Serious: Yes (Other)
  Sender: FDA-Public Use
  Company Number: FR-ROCHE-2078735

PATIENT

DRUGS (2)
  1. RITUXIMAB. [Suspect]
     Active Substance: RITUXIMAB
     Indication: B-CELL LYMPHOMA
     Dosage: ON DAY 1, FOR UP TO 6 CYCLES
     Route: 042
  2. BENDAMUSTINE [Suspect]
     Active Substance: BENDAMUSTINE
     Indication: B-CELL LYMPHOMA
     Dosage: DEPENDING ON FRONTLINE OR RELAPSE SETTING: 90 OR 70 MG/M2 RESPECTIVELY) ON DAYS 1 AND 2, EVERY 4 WEE
     Route: 065

REACTIONS (8)
  - Pneumonia bacterial [Unknown]
  - Thrombocytopenia [Unknown]
  - Anaemia [Unknown]
  - Aspartate aminotransferase increased [Unknown]
  - Neutropenia [Unknown]
  - Infusion related reaction [Unknown]
  - Bacterial prostatitis [Unknown]
  - Alanine aminotransferase increased [Unknown]
